FAERS Safety Report 12922568 (Version 1)
Quarter: 2016Q4

REPORT INFORMATION
  Report Type: Spontaneous
  Country: CN (occurrence: CN)
  Receive Date: 20161108
  Receipt Date: 20161108
  Transmission Date: 20170207
  Serious: Yes (Life-Threatening, Hospitalization)
  Sender: FDA-Public Use
  Company Number: CN-GUERBET LLC-1059346

PATIENT

DRUGS (2)
  1. OPTIRAY PBP [Suspect]
     Active Substance: IOVERSOL
     Indication: ANGIOGRAM
     Route: 013
     Dates: start: 20140527, end: 20140527
  2. WARFARIN SODIUM. [Concomitant]
     Active Substance: WARFARIN SODIUM
     Route: 048

REACTIONS (2)
  - Encephalopathy [Recovered/Resolved]
  - Extravasation [Recovered/Resolved]

NARRATIVE: CASE EVENT DATE: 20140527
